FAERS Safety Report 10618209 (Version 1)
Quarter: 2014Q4

REPORT INFORMATION
  Report Type: Spontaneous
  Country: FR (occurrence: FR)
  Receive Date: 20141202
  Receipt Date: 20141202
  Transmission Date: 20150529
  Serious: Yes (Hospitalization)
  Sender: FDA-Public Use
  Company Number: FR-ASTRAZENECA-2014SE91612

PATIENT
  Age: 76 Year
  Sex: Male

DRUGS (7)
  1. METFORMINE (NON AZ PRODUCT) [Suspect]
     Active Substance: METFORMIN HYDROCHLORIDE
     Route: 048
     Dates: end: 201306
  2. PLAVIX [Suspect]
     Active Substance: CLOPIDOGREL BISULFATE
     Route: 048
     Dates: end: 201410
  3. ALLOPURINOL. [Concomitant]
     Active Substance: ALLOPURINOL
  4. AVODART [Concomitant]
     Active Substance: DUTASTERIDE
     Dosage: ONCE DAILY
  5. TRIVASTAL [Concomitant]
     Active Substance: PIRIBEDIL
  6. ATACAND [Suspect]
     Active Substance: CANDESARTAN CILEXETIL
     Route: 048
  7. MODOPAR [Concomitant]
     Active Substance: BENSERAZIDE HYDROCHLORIDE\LEVODOPA
     Dosage: 62.5 MG FOUR TIMES PER DAY

REACTIONS (4)
  - Bronchiectasis [Unknown]
  - Interstitial lung disease [Unknown]
  - Weight decreased [Unknown]
  - Condition aggravated [Unknown]

NARRATIVE: CASE EVENT DATE: 201306
